FAERS Safety Report 4868374-5 (Version None)
Quarter: 2005Q4

REPORT INFORMATION
  Report Type: 
  Country: None (occurrence: None)
  Receive Date: 20051229
  Receipt Date: 20051215
  Transmission Date: 20060501
  Serious: Yes (Hospitalization, Other)
  Sender: FDA-Public Use
  Company Number: US-GLAXOSMITHKLINE-A0585965A

PATIENT
  Sex: Female

DRUGS (10)
  1. WELLBUTRIN [Suspect]
     Indication: DEPRESSION
     Dosage: 150MG THREE TIMES PER DAY
     Route: 048
     Dates: start: 20000101, end: 20040101
  2. ESKALITH [Suspect]
     Dosage: 1600MG UNKNOWN
     Route: 048
  3. DEPAKOTE [Concomitant]
  4. TEGRETOL [Concomitant]
  5. RISPERDAL [Concomitant]
  6. LUVOX [Concomitant]
  7. ZYPREXA [Concomitant]
  8. EFFEXOR [Concomitant]
  9. DESIPRAMINE HCL [Concomitant]
  10. KLONOPIN [Concomitant]

REACTIONS (36)
  - ALOPECIA [None]
  - CONSTIPATION [None]
  - COUGH [None]
  - DEHYDRATION [None]
  - DIABETES MELLITUS [None]
  - DIARRHOEA [None]
  - DIZZINESS POSTURAL [None]
  - DYSPHONIA [None]
  - HEARING IMPAIRED [None]
  - HIATUS HERNIA [None]
  - HYPERSOMNIA [None]
  - HYSTERECTOMY [None]
  - LETHARGY [None]
  - LIVER DISORDER [None]
  - MEMORY IMPAIRMENT [None]
  - MENTAL STATUS CHANGES [None]
  - NASAL CONGESTION [None]
  - NEPHROLITHIASIS [None]
  - OSTEOARTHRITIS [None]
  - OSTEOPOROSIS [None]
  - PANCREATIC DISORDER [None]
  - PYREXIA [None]
  - RENAL DISORDER [None]
  - RENAL IMPAIRMENT [None]
  - RHEUMATOID ARTHRITIS [None]
  - RHINORRHOEA [None]
  - SEDATION [None]
  - SUICIDE ATTEMPT [None]
  - TREMOR [None]
  - ULCER [None]
  - VISION BLURRED [None]
  - VISUAL DISTURBANCE [None]
  - VOMITING [None]
  - WEIGHT DECREASED [None]
  - WEIGHT INCREASED [None]
  - YELLOW SKIN [None]
